FAERS Safety Report 6193528-8 (Version None)
Quarter: 2009Q2

REPORT INFORMATION
  Report Type: 
  Country: None (occurrence: None)
  Receive Date: 20090518
  Receipt Date: 20090508
  Transmission Date: 20091009
  Serious: Yes (Other)
  Sender: FDA-Public Use
  Company Number: US-GENENTECH-279333

PATIENT
  Sex: Male
  Weight: 63.946 kg

DRUGS (1)
  1. NUTROPIN [Suspect]
     Indication: GROWTH HORMONE DEFICIENCY
     Dosage: 3.7 MG, QD
     Route: 058
     Dates: start: 20041108

REACTIONS (1)
  - MACROGENIA [None]
